FAERS Safety Report 11120625 (Version 1)
Quarter: 2015Q2

REPORT INFORMATION
  Report Type: Spontaneous
  Country: US (occurrence: US)
  Receive Date: 20150519
  Receipt Date: 20150519
  Transmission Date: 20150821
  Serious: No
  Sender: FDA-Public Use
  Company Number: US-009507513-1505USA003892

PATIENT
  Sex: Male

DRUGS (1)
  1. GRASTEK [Suspect]
     Active Substance: PHLEUM PRATENSE POLLEN
     Dosage: 1 TABLET ONCE DAILY
     Route: 060
     Dates: start: 20150417, end: 201505

REACTIONS (1)
  - Oral pruritus [Unknown]

NARRATIVE: CASE EVENT DATE: 201504
